FAERS Safety Report 14577549 (Version 1)
Quarter: 2018Q1

REPORT INFORMATION
  Report Type: Spontaneous
  Country: US (occurrence: US)
  Receive Date: 20180226
  Receipt Date: 20180226
  Transmission Date: 20180509
  Serious: Yes (Other)
  Sender: FDA-Public Use
  Company Number: None

PATIENT
  Sex: Female
  Weight: 92.25 kg

DRUGS (2)
  1. EYLEA [Suspect]
     Active Substance: AFLIBERCEPT
  2. LUCENTIS [Concomitant]
     Active Substance: RANIBIZUMAB

REACTIONS (7)
  - Eye pain [None]
  - Eye pruritus [None]
  - Vision blurred [None]
  - Non-infectious endophthalmitis [None]
  - Vitreous floaters [None]
  - Blindness [None]
  - Lacrimation increased [None]

NARRATIVE: CASE EVENT DATE: 20170723
